FAERS Safety Report 13767660 (Version 1)
Quarter: 2017Q3

REPORT INFORMATION
  Report Type: Spontaneous
  Country: US (occurrence: US)
  Receive Date: 20170719
  Receipt Date: 20170719
  Transmission Date: 20171127
  Serious: No
  Sender: FDA-Public Use
  Company Number: US-BRISTOL-MYERS SQUIBB COMPANY-BMS-2017-063855

PATIENT
  Sex: Male

DRUGS (1)
  1. OPDIVO [Suspect]
     Active Substance: NIVOLUMAB
     Indication: INTRAOCULAR MELANOMA
     Route: 042

REACTIONS (5)
  - Urinary incontinence [Unknown]
  - Off label use [Unknown]
  - Gait disturbance [Unknown]
  - Disorientation [Unknown]
  - Speech disorder [Unknown]
